FAERS Safety Report 5370440-5 (Version None)
Quarter: 2007Q2

REPORT INFORMATION
  Report Type: 
  Country: None (occurrence: None)
  Receive Date: 20070626
  Receipt Date: 20070427
  Transmission Date: 20071010
  Serious: No
  Sender: FDA-Public Use
  Company Number: US-AMGEN-US221944

PATIENT
  Sex: Male

DRUGS (1)
  1. ARANESP [Suspect]
     Indication: RENAL FAILURE CHRONIC
     Route: 065
     Dates: start: 20060101

REACTIONS (1)
  - MALAISE [None]
